FAERS Safety Report 8425309-6 (Version None)
Quarter: 2012Q2

REPORT INFORMATION
  Report Type: 
  Country: None (occurrence: None)
  Receive Date: 20120611
  Receipt Date: 20120531
  Transmission Date: 20120825
  Serious: Yes (Hospitalization)
  Sender: FDA-Public Use
  Company Number: CA-JNJFOC-20111010252

PATIENT
  Sex: Female
  Weight: 61.1 kg

DRUGS (5)
  1. ASACOL [Concomitant]
     Route: 065
  2. ACTONEL [Concomitant]
     Route: 065
  3. REMICADE [Suspect]
     Indication: CROHN'S DISEASE
     Dosage: HAS HAD 23 INFUSIONS  V-1: RECEIVED 27 INFUSIONS
     Route: 042
  4. FOLIC ACID [Concomitant]
     Route: 065
  5. PAXIL [Concomitant]
     Route: 065

REACTIONS (3)
  - FATIGUE [None]
  - CAESAREAN SECTION [None]
  - MATERNAL EXPOSURE DURING PREGNANCY [None]
